FAERS Safety Report 4888529-3 (Version None)
Quarter: 2005Q4

REPORT INFORMATION
  Report Type: 
  Country: None (occurrence: None)
  Receive Date: 20051215
  Receipt Date: 20041214
  Transmission Date: 20060501
  Serious: Yes (Other)
  Sender: FDA-Public Use
  Company Number: 2004239238US

PATIENT
  Age: 86 Year
  Sex: Male

DRUGS (2)
  1. BEXTRA [Suspect]
     Indication: ARTHRITIS
     Dosage: (10 MG)
     Dates: start: 20041001
  2. ROFECOXIB [Concomitant]

REACTIONS (1)
  - CEREBROVASCULAR ACCIDENT [None]
